FAERS Safety Report 4501896-5 (Version None)
Quarter: 2004Q4

REPORT INFORMATION
  Report Type: 
  Country: None (occurrence: None)
  Receive Date: 20041116
  Receipt Date: 20041025
  Transmission Date: 20050328
  Serious: Yes (Hospitalization, Other)
  Sender: FDA-Public Use
  Company Number: 200420576GDDC

PATIENT
  Age: 43 Year
  Sex: Female

DRUGS (5)
  1. KETEK [Suspect]
     Indication: SINUSITIS
     Dates: start: 20041012, end: 20041021
  2. CLARITIN-D [Concomitant]
     Indication: SINUSITIS
     Dosage: DOSE: UNK
     Route: 048
     Dates: start: 20041012, end: 20041021
  3. ACTIFED [Concomitant]
     Indication: SINUSITIS
     Dosage: DOSE: UNK
     Route: 048
     Dates: start: 20041012, end: 20041021
  4. NASOMIN [Concomitant]
     Dosage: DOSE: UNK
     Route: 045
     Dates: start: 20041012, end: 20041021
  5. VIBROCIL [Concomitant]
     Dosage: DOSE: UNK
     Route: 045
     Dates: start: 20041012, end: 20041021

REACTIONS (3)
  - DIZZINESS [None]
  - OPTIC NEURITIS [None]
  - VISION BLURRED [None]
